FAERS Safety Report 22383666 (Version 1)
Quarter: 2023Q2

REPORT INFORMATION
  Report Type: Spontaneous
  Country: US (occurrence: None)
  Receive Date: 20230526
  Receipt Date: 20230526
  Transmission Date: 20230721
  Serious: No
  Sender: FDA-Public Use
  Company Number: None

PATIENT
  Age: 72 Year
  Sex: Male

DRUGS (1)
  1. LENALIDOMIDE [Suspect]
     Active Substance: LENALIDOMIDE
     Indication: Plasma cell myeloma
     Dosage: 5MG OTHER ORAL?
     Route: 048
     Dates: start: 202009

REACTIONS (4)
  - COVID-19 [None]
  - Gastrooesophageal reflux disease [None]
  - Dyspepsia [None]
  - Dyspepsia [None]

NARRATIVE: CASE EVENT DATE: 20230526
